FAERS Safety Report 23353228 (Version 4)
Quarter: 2024Q1

REPORT INFORMATION
  Report Type: Report from Study
  Country: EG (occurrence: EG)
  Receive Date: 20231230
  Receipt Date: 20240227
  Transmission Date: 20240409
  Serious: Yes (Other)
  Sender: FDA-Public Use
  Company Number: EG-002147023-NVSC2023EG274797

PATIENT
  Age: 59 Year
  Sex: Female

DRUGS (12)
  1. ENTRESTO [Suspect]
     Active Substance: SACUBITRIL\VALSARTAN
     Indication: Cardiac failure
     Dosage: 1 DOSAGE FORM, BID
     Route: 048
     Dates: start: 202211, end: 202312
  2. ENTRESTO [Suspect]
     Active Substance: SACUBITRIL\VALSARTAN
     Dosage: 01 DOSAGE FORM, QD (STARTED 10 DAYS AGO AND STOPPED ONLY FOR 5 DAYS))
     Route: 048
     Dates: start: 202312
  3. ENTRESTO [Suspect]
     Active Substance: SACUBITRIL\VALSARTAN
     Dosage: 01 DOSAGE FORM, BID
     Route: 048
  4. CRESTOR [Concomitant]
     Active Substance: ROSUVASTATIN CALCIUM
     Indication: Cardiac disorder
     Dosage: 10 MG, QD
     Route: 048
     Dates: start: 202211
  5. BISOPROLOL FUMARATE [Concomitant]
     Active Substance: BISOPROLOL FUMARATE
     Indication: Cardiac disorder
     Dosage: 1 TABLET BID
     Route: 048
     Dates: start: 202211
  6. BISOPROLOL FUMARATE [Concomitant]
     Active Substance: BISOPROLOL FUMARATE
     Dosage: 1 DOSAGE FORM, QD (DAILY 2 OR 3 WEEKS FROM THE STARTING DATE)
     Route: 065
  7. SPECTONE [Concomitant]
     Indication: Product used for unknown indication
     Dosage: 1 DOSAGE FORM, QD
     Route: 048
     Dates: start: 202211
  8. CORDARONE [Concomitant]
     Active Substance: AMIODARONE HYDROCHLORIDE
     Indication: Product used for unknown indication
     Dosage: 1 TABLET MORNING QD
     Route: 048
     Dates: start: 202211
  9. JARDIANCE [Concomitant]
     Active Substance: EMPAGLIFLOZIN
     Indication: Prophylaxis
     Dosage: 1 TABLET QD
     Route: 048
     Dates: start: 202211
  10. CARFALONE [Concomitant]
     Indication: Blood cholesterol increased
     Dosage: 1 DOSAGE FORM, QD
     Route: 065
     Dates: start: 202211
  11. CARFALONE [Concomitant]
     Dosage: 1 TABLET QD
     Route: 065
     Dates: start: 20221210
  12. ASPIRIN [Concomitant]
     Active Substance: ASPIRIN
     Indication: Anticoagulant therapy
     Dosage: 1 TABLET, AFTER LUNCH QD
     Route: 065
     Dates: start: 202211

REACTIONS (7)
  - Hypotension [Recovered/Resolved]
  - Fatigue [Unknown]
  - Ejection fraction decreased [Unknown]
  - Lethargy [Recovered/Resolved]
  - Renal function test abnormal [Unknown]
  - Product dose omission issue [Unknown]
  - Off label use [Recovered/Resolved]

NARRATIVE: CASE EVENT DATE: 20221101
